FAERS Safety Report 9782485 (Version 3)
Quarter: 2013Q4

REPORT INFORMATION
  Report Type: Spontaneous
  Country: CH (occurrence: CH)
  Receive Date: 20131226
  Receipt Date: 20131226
  Transmission Date: 20140711
  Serious: Yes (Hospitalization, Other)
  Sender: FDA-Public Use
  Company Number: CH-PFIZER INC-2012232882

PATIENT
  Sex: Male

DRUGS (3)
  1. XANAX [Suspect]
     Indication: DEPRESSION
     Dosage: 4 MG, 1X/DAY
     Route: 064
  2. XANAX [Suspect]
     Dosage: 1 TO 2 MG PER DAY
     Route: 064
  3. CYMBALTA [Suspect]
     Indication: DEPRESSION
     Dosage: 30 MG, 1X/DAY
     Route: 064

REACTIONS (3)
  - Maternal exposure during pregnancy [Recovered/Resolved]
  - Pneumomediastinum [Recovered/Resolved]
  - Respiratory disorder neonatal [Recovered/Resolved]
